FAERS Safety Report 6956160-1 (Version None)
Quarter: 2010Q3

REPORT INFORMATION
  Report Type: 
  Country: None (occurrence: None)
  Receive Date: 20100830
  Receipt Date: 20100818
  Transmission Date: 20110219
  Serious: Yes (Hospitalization)
  Sender: FDA-Public Use
  Company Number: PHFR2010GB02298

PATIENT
  Sex: Male

DRUGS (2)
  1. CLOZARIL [Suspect]
     Indication: SCHIZOPHRENIA
     Dosage: 200-225 MG/DAY
     Route: 048
     Dates: start: 20100601
  2. DEPAKOTE [Concomitant]

REACTIONS (6)
  - ALANINE AMINOTRANSFERASE INCREASED [None]
  - GLOMERULAR FILTRATION RATE DECREASED [None]
  - MALAISE [None]
  - RENAL FAILURE [None]
  - WEIGHT DECREASED [None]
  - YELLOW SKIN [None]
